FAERS Safety Report 19164701 (Version 1)
Quarter: 2021Q2

REPORT INFORMATION
  Report Type: Spontaneous
  Country: JP (occurrence: JP)
  Receive Date: 20210421
  Receipt Date: 20210421
  Transmission Date: 20210717
  Serious: Yes (Other)
  Sender: FDA-Public Use
  Company Number: JP-ROCHE-2812192

PATIENT
  Age: 49 Year
  Sex: Male

DRUGS (12)
  1. TECENTRIQ [Suspect]
     Active Substance: ATEZOLIZUMAB
     Indication: HEPATOCELLULAR CARCINOMA
     Route: 041
     Dates: start: 20201030
  2. EQUMET [Concomitant]
     Active Substance: METFORMIN HYDROCHLORIDE\VILDAGLIPTIN
     Dosage: DOSAGE IS UNCERTAIN.
     Route: 048
  3. MAVIRET [Concomitant]
     Active Substance: GLECAPREVIR\PIBRENTASVIR
     Indication: HEPATITIS C
     Route: 048
     Dates: start: 20180530
  4. REZALTAS [Concomitant]
     Active Substance: AZELNIDIPINE\OLMESARTAN MEDOXOMIL
     Dosage: DOSAGE IS UNCERTAIN.
     Route: 048
  5. SUGLAT [Concomitant]
     Active Substance: IPRAGLIFLOZIN L-PROLINE
     Dosage: DOSAGE IS UNCERTAIN.
     Route: 048
  6. ACTOS [Concomitant]
     Active Substance: PIOGLITAZONE HYDROCHLORIDE
     Dosage: DOSAGE IS UNCERTAIN.
     Route: 048
  7. FAMOTIDINE. [Concomitant]
     Active Substance: FAMOTIDINE
     Dosage: DOSAGE IS UNCERTAIN.
     Route: 048
  8. GLIMEPIRIDE. [Concomitant]
     Active Substance: GLIMEPIRIDE
     Dosage: DOSAGE IS UNCERTAIN.
     Route: 048
  9. TAPENTA [Concomitant]
     Active Substance: TAPENTADOL HYDROCHLORIDE
     Dosage: DOSAGE IS UNCERTAIN.
     Route: 048
  10. AVASTIN [Suspect]
     Active Substance: BEVACIZUMAB
     Indication: HEPATOCELLULAR CARCINOMA
     Route: 041
     Dates: start: 20201030
  11. BENZALIN (JAPAN) [Concomitant]
     Active Substance: NITRAZEPAM
     Dosage: DOSAGE IS UNCERTAIN.
     Route: 048
  12. ARTIST [Concomitant]
     Active Substance: CARVEDILOL
     Dosage: DOSAGE IS UNCERTAIN.
     Route: 048

REACTIONS (2)
  - Alanine aminotransferase increased [Recovered/Resolved]
  - Aspartate aminotransferase increased [Recovered/Resolved]

NARRATIVE: CASE EVENT DATE: 20201120
